FAERS Safety Report 21134698 (Version 1)
Quarter: 2022Q3

REPORT INFORMATION
  Report Type: Spontaneous
  Country: US (occurrence: US)
  Receive Date: 20220727
  Receipt Date: 20220727
  Transmission Date: 20221027
  Serious: No
  Sender: FDA-Public Use
  Company Number: US-JNJFOC-20220741854

PATIENT
  Age: 80 Year
  Sex: Male
  Weight: 72.640 kg

DRUGS (4)
  1. OPSUMIT [Suspect]
     Active Substance: MACITENTAN
     Indication: Product used for unknown indication
     Route: 048
     Dates: start: 202205
  2. TREPROSTINIL SODIUM [Suspect]
     Active Substance: TREPROSTINIL SODIUM
     Indication: Pulmonary arterial hypertension
     Dosage: 18-72 UG(0.6 MG/ML)
     Route: 055
     Dates: start: 20220706
  3. TREPROSTINIL SODIUM [Suspect]
     Active Substance: TREPROSTINIL SODIUM
     Dosage: 0.6 MG/ML
     Route: 055
     Dates: start: 2022
  4. OFEV [Concomitant]
     Active Substance: NINTEDANIB

REACTIONS (7)
  - Oxygen consumption increased [Unknown]
  - Blood urine present [Unknown]
  - Hypertension [Unknown]
  - COVID-19 [Unknown]
  - Diarrhoea [Unknown]
  - Anxiety [Unknown]
  - Drug ineffective [Unknown]

NARRATIVE: CASE EVENT DATE: 20220101
